FAERS Safety Report 12909541 (Version 1)
Quarter: 2016Q4

REPORT INFORMATION
  Report Type: Spontaneous
  Country: FR (occurrence: FR)
  Receive Date: 20161104
  Receipt Date: 20161104
  Transmission Date: 20170207
  Serious: Yes (Hospitalization)
  Sender: FDA-Public Use
  Company Number: FR-ROCHE-104659

PATIENT
  Age: 64 Year
  Sex: Male

DRUGS (7)
  1. ROFERON-A [Suspect]
     Active Substance: INTERFERON ALFA-2A
     Indication: KAPOSI^S SARCOMA
     Route: 058
     Dates: start: 199602, end: 199604
  2. ROFERON-A [Suspect]
     Active Substance: INTERFERON ALFA-2A
     Route: 058
     Dates: start: 199608, end: 19960930
  3. CRIXIVAN [Concomitant]
     Active Substance: INDINAVIR SULFATE
     Indication: HIV INFECTION
     Route: 048
  4. ROFERON-A [Suspect]
     Active Substance: INTERFERON ALFA-2A
     Route: 058
     Dates: start: 199604, end: 199608
  5. INTRON A [Suspect]
     Active Substance: INTERFERON ALFA-2B
     Indication: KAPOSI^S SARCOMA
     Route: 058
     Dates: start: 19961001, end: 199702
  6. AZT [Concomitant]
     Active Substance: ZIDOVUDINE
     Indication: HIV INFECTION
     Route: 048
  7. 3TC [Concomitant]
     Active Substance: LAMIVUDINE
     Indication: HIV INFECTION
     Route: 048

REACTIONS (2)
  - Thrombosis [Recovering/Resolving]
  - Skin necrosis [Recovering/Resolving]

NARRATIVE: CASE EVENT DATE: 19970109
